FAERS Safety Report 18916127 (Version 1)
Quarter: 2021Q1

REPORT INFORMATION
  Report Type: Spontaneous
  Country: FR (occurrence: FR)
  Receive Date: 20210219
  Receipt Date: 20210219
  Transmission Date: 20210420
  Serious: Yes (Other)
  Sender: FDA-Public Use
  Company Number: FR-SA-2020SA282253

PATIENT
  Age: 58 Year
  Sex: Female

DRUGS (4)
  1. PYLERA [Suspect]
     Active Substance: BISMUTH SUBCITRATE POTASSIUM\METRONIDAZOLE\TETRACYCLINE HYDROCHLORIDE
     Indication: GASTRODUODENAL ULCER
  2. PYLERA [Suspect]
     Active Substance: BISMUTH SUBCITRATE POTASSIUM\METRONIDAZOLE\TETRACYCLINE HYDROCHLORIDE
     Indication: HELICOBACTER INFECTION
     Dosage: 12/D
     Route: 048
     Dates: start: 20200905, end: 20200916
  3. AUBAGIO [Suspect]
     Active Substance: TERIFLUNOMIDE
     Dosage: 18 MG, QD
     Route: 048
     Dates: start: 20201124
  4. AUBAGIO [Suspect]
     Active Substance: TERIFLUNOMIDE
     Indication: MULTIPLE SCLEROSIS
     Dosage: 18 MG, QD
     Route: 048
     Dates: start: 20200728, end: 20200916

REACTIONS (4)
  - Product use issue [Unknown]
  - Transaminases increased [Unknown]
  - Hepatocellular injury [Recovered/Resolved]
  - Helicobacter infection [Unknown]

NARRATIVE: CASE EVENT DATE: 202009
